FAERS Safety Report 12375391 (Version 1)
Quarter: 2016Q2

REPORT INFORMATION
  Report Type: Spontaneous
  Country: US (occurrence: US)
  Receive Date: 20160517
  Receipt Date: 20160517
  Transmission Date: 20160815
  Serious: No
  Sender: FDA-Public Use
  Company Number: US-RELYPSA-RLY2016000015

PATIENT

DRUGS (4)
  1. LISINOPRIL. [Concomitant]
     Active Substance: LISINOPRIL
  2. NIFEDICAL XL [Concomitant]
     Active Substance: NIFEDIPINE
  3. CLONIDINE. [Concomitant]
     Active Substance: CLONIDINE
     Dosage: 8.4 MG, UNK
  4. VELTASSA [Suspect]
     Active Substance: PATIROMER
     Indication: HYPERKALAEMIA
     Dosage: 8.4 MG, QD
     Dates: start: 20160121

REACTIONS (1)
  - Blood pressure increased [Unknown]
